FAERS Safety Report 18176688 (Version 1)
Quarter: 2020Q3

REPORT INFORMATION
  Report Type: Spontaneous
  Country: CA (occurrence: CA)
  Receive Date: 20200820
  Receipt Date: 20200820
  Transmission Date: 20201103
  Serious: Yes (Other)
  Sender: FDA-Public Use
  Company Number: CA-JNJFOC-20200820190

PATIENT
  Age: 41 Year
  Sex: Female

DRUGS (3)
  1. DESOXIMETASONE. [Suspect]
     Active Substance: DESOXIMETASONE
     Indication: PRODUCT USED FOR UNKNOWN INDICATION
  2. STELARA [Suspect]
     Active Substance: USTEKINUMAB
     Indication: CROHN^S DISEASE
     Route: 058
  3. CIPROFLOXACIN. [Suspect]
     Active Substance: CIPROFLOXACIN
     Indication: PRODUCT USED FOR UNKNOWN INDICATION

REACTIONS (7)
  - Frequent bowel movements [Unknown]
  - General physical health deterioration [Unknown]
  - Nausea [Unknown]
  - Abdominal pain [Unknown]
  - Staphylococcal infection [Unknown]
  - Seizure [Unknown]
  - Pruritus [Unknown]
